FAERS Safety Report 22153932 (Version 5)
Quarter: 2023Q2

REPORT INFORMATION
  Report Type: Spontaneous
  Country: US (occurrence: US)
  Receive Date: 20230330
  Receipt Date: 20230519
  Transmission Date: 20230722
  Serious: No
  Sender: FDA-Public Use
  Company Number: US-UNITED THERAPEUTICS-UNT-2023-005494

PATIENT
  Age: 52 Year
  Sex: Male
  Weight: 99.773 kg

DRUGS (10)
  1. REMODULIN [Suspect]
     Active Substance: TREPROSTINIL
     Indication: Pulmonary arterial hypertension
     Dosage: 0.020 ?G/KG (PRE-FILLED WITH 2.4 ML/CASSETTE AT PUMP RATE 24 MCL/HOUR), CONTINUING
     Route: 058
  2. REMODULIN [Suspect]
     Active Substance: TREPROSTINIL
     Dosage: UNK, CONTINUING
     Route: 058
  3. REMODULIN [Suspect]
     Active Substance: TREPROSTINIL
     Dosage: UNK, CONTINUING
     Route: 058
     Dates: start: 20230220
  4. UPTRAVI [Suspect]
     Active Substance: SELEXIPAG
     Indication: Pulmonary arterial hypertension
     Dosage: 200 ?G, BID (200 ?G,1 TIME IN EVERY 0.5 DAYS)
     Route: 048
  5. UPTRAVI [Suspect]
     Active Substance: SELEXIPAG
     Dosage: 1200 ?G, BID (600 ?G, 1 TIME EVERY 5 DAYS)
     Route: 048
  6. UPTRAVI [Suspect]
     Active Substance: SELEXIPAG
     Dosage: UNK
     Route: 065
  7. TADALAFIL [Concomitant]
     Active Substance: TADALAFIL
     Indication: Product used for unknown indication
     Dosage: UNK
     Route: 065
  8. OPSUMIT [Concomitant]
     Active Substance: MACITENTAN
     Indication: Product used for unknown indication
     Dosage: UNK
     Route: 065
  9. NIFEDIPINE [Concomitant]
     Active Substance: NIFEDIPINE
     Indication: Product used for unknown indication
     Dosage: UNK
     Route: 065
  10. AMBRISENTAN [Concomitant]
     Active Substance: AMBRISENTAN
     Indication: Product used for unknown indication
     Dosage: UNK
     Route: 065

REACTIONS (15)
  - Pain in extremity [Unknown]
  - Burning sensation [Unknown]
  - Mobility decreased [Unknown]
  - Contusion [Unknown]
  - Headache [Recovered/Resolved]
  - Diarrhoea [Unknown]
  - Infusion site pain [Unknown]
  - Gait inability [Unknown]
  - Device dislocation [Unknown]
  - Infusion site infection [Unknown]
  - Pain [Not Recovered/Not Resolved]
  - Dyspnoea [Recovering/Resolving]
  - Oedema [Recovering/Resolving]
  - Paraesthesia [Unknown]
  - Salivary gland pain [Unknown]

NARRATIVE: CASE EVENT DATE: 20230201
